FAERS Safety Report 6204645-8 (Version None)
Quarter: 2009Q2

REPORT INFORMATION
  Report Type: 
  Country: None (occurrence: None)
  Receive Date: 20090527
  Receipt Date: 20090520
  Transmission Date: 20091009
  Serious: Yes (Hospitalization)
  Sender: FDA-Public Use
  Company Number: DE-SANOFI-SYNTHELABO-A04200900139

PATIENT
  Sex: Female

DRUGS (4)
  1. QUENSYL [Suspect]
     Indication: RHEUMATOID ARTHRITIS
     Dosage: UNK
     Route: 048
     Dates: start: 20090101, end: 20090201
  2. PREDNISOLONE [Concomitant]
     Indication: POLYARTHRITIS
     Route: 065
  3. OMEPRAZOL [Concomitant]
     Indication: GASTRITIS
     Dosage: UNK
     Route: 048
  4. CALCICARE D3 BT [Concomitant]
     Indication: OSTEOPOROSIS PROPHYLAXIS
     Dosage: UNK
     Route: 048

REACTIONS (5)
  - ABDOMINAL PAIN [None]
  - BILIARY DILATATION [None]
  - PANCREATIC CYST [None]
  - PANCREATITIS CHRONIC [None]
  - RASH GENERALISED [None]
